FAERS Safety Report 25830829 (Version 2)
Quarter: 2025Q4

REPORT INFORMATION
  Report Type: Spontaneous
  Country: EU (occurrence: EU)
  Receive Date: 20250922
  Receipt Date: 20251209
  Transmission Date: 20260117
  Serious: Yes (Other)
  Sender: ROCHE
  Company Number: EU-ROCHE-10000388923

PATIENT
  Age: 8 Year
  Sex: Female
  Weight: 42 kg

DRUGS (1)
  1. EVRYSDI [Suspect]
     Active Substance: RISDIPLAM
     Indication: Spinal muscular atrophy

REACTIONS (6)
  - Gait disturbance [Unknown]
  - Motor dysfunction [Unknown]
  - Fatigue [Unknown]
  - Pain [Unknown]
  - Muscular weakness [Unknown]
  - Dysstasia [Unknown]
